FAERS Safety Report 13022631 (Version 3)
Quarter: 2017Q1

REPORT INFORMATION
  Report Type: Spontaneous
  Country: US (occurrence: US)
  Receive Date: 20161213
  Receipt Date: 20170123
  Transmission Date: 20170428
  Serious: Yes (Other)
  Sender: FDA-Public Use
  Company Number: US-PFIZER INC-2016572456

PATIENT
  Age: 67 Year
  Sex: Male
  Weight: 111 kg

DRUGS (2)
  1. DILANTIN [Suspect]
     Active Substance: PHENYTOIN
     Indication: EPILEPSY
     Dosage: 600 MG, DAILY (THREE 100 MG BY MOUTH MORNING AND NIGHT DAILY, EXCEPT MONDAY AND FRIDAY)
     Route: 048
  2. DILANTIN [Suspect]
     Active Substance: PHENYTOIN
     Dosage: 500 MG, DAILY (ON MONDAY AND FRIDAY, HE TAKES THREE 100 MG IN THE MORNING AND TWO 100 MG AT NIGHT)
     Route: 048

REACTIONS (12)
  - Retinal detachment [Unknown]
  - Fall [Unknown]
  - Vision blurred [Unknown]
  - Constipation [Not Recovered/Not Resolved]
  - Condition aggravated [Not Recovered/Not Resolved]
  - Anticonvulsant drug level increased [Unknown]
  - Burning sensation [Unknown]
  - Dizziness [Not Recovered/Not Resolved]
  - Hypoaesthesia [Not Recovered/Not Resolved]
  - Cataract [Unknown]
  - Gait disturbance [Not Recovered/Not Resolved]
  - Coordination abnormal [Not Recovered/Not Resolved]

NARRATIVE: CASE EVENT DATE: 2014
